FAERS Safety Report 18860007 (Version 4)
Quarter: 2021Q2

REPORT INFORMATION
  Report Type: Spontaneous
  Country: JP (occurrence: JP)
  Receive Date: 20210208
  Receipt Date: 20210531
  Transmission Date: 20210717
  Serious: Yes (Other)
  Sender: FDA-Public Use
  Company Number: JP-PFIZER INC-2021118756

PATIENT
  Age: 13 Year
  Sex: Male

DRUGS (10)
  1. NOBELBAR [Suspect]
     Active Substance: PHENOBARBITAL SODIUM
     Indication: SEIZURE CLUSTER
     Dosage: UNK
     Route: 042
  2. MIDAZOLAM. [Suspect]
     Active Substance: MIDAZOLAM
     Indication: SEIZURE
  3. NOBELBAR [Suspect]
     Active Substance: PHENOBARBITAL SODIUM
     Indication: SEIZURE
  4. FOSTOIN [Suspect]
     Active Substance: FOSPHENYTOIN SODIUM
     Indication: SEIZURE
  5. MIDAZOLAM. [Suspect]
     Active Substance: MIDAZOLAM
     Indication: SEIZURE CLUSTER
     Dosage: UNK
     Route: 042
  6. THIOPENTAL SODIUM. [Suspect]
     Active Substance: THIOPENTAL SODIUM
     Indication: SEIZURE CLUSTER
     Dosage: UNK
     Route: 042
  7. LEVETIRACETAM. [Suspect]
     Active Substance: LEVETIRACETAM
     Indication: SEIZURE CLUSTER
     Dosage: UNK
     Route: 042
  8. FOSTOIN [Suspect]
     Active Substance: FOSPHENYTOIN SODIUM
     Indication: SEIZURE CLUSTER
     Dosage: UNK
     Route: 042
  9. LEVETIRACETAM. [Suspect]
     Active Substance: LEVETIRACETAM
     Indication: SEIZURE
  10. METHYLPREDNISOLONE. [Concomitant]
     Active Substance: METHYLPREDNISOLONE
     Indication: ENCEPHALITIS
     Dosage: 1000 MG, DAILY (FOR 3 DAYS)
     Route: 065

REACTIONS (3)
  - Impaired gastric emptying [Unknown]
  - Diarrhoea [Unknown]
  - Drug ineffective [Unknown]
